FAERS Safety Report 8477204 (Version 4)
Quarter: 2013Q3

REPORT INFORMATION
  Report Type: Spontaneous
  Country: JP (occurrence: JP)
  Receive Date: 20120326
  Receipt Date: 20130726
  Transmission Date: 20140515
  Serious: Yes (Other)
  Sender: FDA-Public Use
  Company Number: JP-ASTRAZENECA-2012SE19127

PATIENT
  Age: 77 Year
  Sex: Female
  Weight: 64 kg

DRUGS (13)
  1. BLOPRESS [Suspect]
     Indication: HYPERTENSION
     Route: 048
     Dates: start: 20101002, end: 20120405
  2. PLAVIX (NON AZ PRODUCT) [Suspect]
     Indication: THROMBOSIS PROPHYLAXIS
     Route: 048
     Dates: start: 20100926
  3. SYR-322 CODE NOT BROKEN [Suspect]
     Indication: TYPE 2 DIABETES MELLITUS
     Route: 048
     Dates: start: 20101126, end: 20101201
  4. SYR-322 CODE NOT BROKEN [Suspect]
     Indication: TYPE 2 DIABETES MELLITUS
     Dates: start: 20110302, end: 20110830
  5. TAKEPRON OD [Suspect]
     Indication: PROPHYLAXIS
     Route: 048
     Dates: start: 20100926
  6. LIPITOR [Suspect]
     Indication: LIPID METABOLISM DISORDER
     Route: 048
     Dates: start: 20100926
  7. FASTIC [Concomitant]
     Indication: TYPE 2 DIABETES MELLITUS
     Route: 048
     Dates: start: 20100928, end: 20110825
  8. GLUCOBAY [Concomitant]
     Indication: TYPE 2 DIABETES MELLITUS
     Route: 048
     Dates: start: 20101002
  9. BAYASPIRIN [Concomitant]
     Indication: THROMBOSIS PROPHYLAXIS
     Route: 048
     Dates: start: 20100926
  10. ARTIST [Concomitant]
     Indication: HYPERTENSION
     Route: 048
     Dates: start: 20101005
  11. LUPRAC [Concomitant]
     Indication: ACUTE MYOCARDIAL INFARCTION
     Route: 048
     Dates: start: 20101002, end: 20110908
  12. MAGMITT [Concomitant]
     Indication: CONSTIPATION
     Route: 048
     Dates: start: 20101004
  13. MERISLON [Concomitant]
     Indication: DIZZINESS
     Route: 048
     Dates: start: 20101029, end: 20110825

REACTIONS (1)
  - Interstitial lung disease [Recovering/Resolving]
